FAERS Safety Report 6710307-0 (Version None)
Quarter: 2010Q2

REPORT INFORMATION
  Report Type: 
  Country: None (occurrence: None)
  Receive Date: 20100504
  Receipt Date: 20100420
  Transmission Date: 20101027
  Serious: Yes (Other)
  Sender: FDA-Public Use
  Company Number: JP-MYLANLABS-2010S1006695

PATIENT
  Age: 89 Year
  Sex: Female
  Weight: 36 kg

DRUGS (8)
  1. PAROXETINE HCL [Suspect]
     Route: 065
  2. SODIUM CHLORIDE [Suspect]
     Dosage: 45 MEQ/L
     Route: 065
  3. SPIRONOLACTONE [Suspect]
     Route: 065
  4. MECOBALAMIN [Concomitant]
     Route: 065
  5. LIMAPROST [Concomitant]
     Route: 065
  6. AMLODIPINE [Concomitant]
     Route: 065
  7. ETODOLAC [Concomitant]
     Route: 065
  8. RALOXIFENE HCL [Concomitant]
     Route: 065

REACTIONS (2)
  - HYPONATRAEMIA [None]
  - INAPPROPRIATE ANTIDIURETIC HORMONE SECRETION [None]
